FAERS Safety Report 4622991-6 (Version None)
Quarter: 2005Q1

REPORT INFORMATION
  Report Type: 
  Country: None (occurrence: None)
  Receive Date: 20050329
  Receipt Date: 20041213
  Transmission Date: 20050727
  Serious: Yes (Death, Hospitalization)
  Sender: FDA-Public Use
  Company Number: 9402

PATIENT
  Age: 65 Year
  Sex: Female

DRUGS (7)
  1. CLOZAPINE [Suspect]
     Indication: PSYCHOTIC DISORDER
     Dosage: 325 MG NOCTE, PO
     Route: 048
     Dates: start: 20031112, end: 20041211
  2. AMIODARONE [Suspect]
     Dosage: 200 GM AMNE ,  PO
     Route: 048
  3. DIGOXIN [Suspect]
     Dosage: 125 MICROGRAM MANE, PO
     Route: 048
  4. PERINDOPRIL [Suspect]
     Indication: HYPERTENSION
     Dosage: 4 MG NOCTE, PO
     Route: 048
  5. BENZTROPINE MESYLATE [Suspect]
     Dosage: PO
     Route: 048
  6. ASPIRIN [Suspect]
     Indication: THROMBOSIS PROPHYLAXIS
     Dosage: 100 MG ALT_DAYS
  7. DOXEPIN HCL [Suspect]
     Indication: DEPRESSION
     Dosage: 100 MG NOCTE

REACTIONS (4)
  - CEREBROVASCULAR ACCIDENT [None]
  - CONSTIPATION [None]
  - LOSS OF CONSCIOUSNESS [None]
  - RECTAL PROLAPSE [None]
